FAERS Safety Report 11626392 (Version 1)
Quarter: 2015Q4

REPORT INFORMATION
  Report Type: Spontaneous
  Country: US (occurrence: US)
  Receive Date: 20151013
  Receipt Date: 20151013
  Transmission Date: 20160304
  Serious: No
  Sender: FDA-Public Use
  Company Number: US-ROCHE-1462241

PATIENT
  Sex: Female
  Weight: 63.56 kg

DRUGS (1)
  1. ZELBORAF [Suspect]
     Active Substance: VEMURAFENIB
     Indication: PRODUCT USED FOR UNKNOWN INDICATION
     Dosage: 4 TABLETS BID
     Route: 048
     Dates: start: 20140314

REACTIONS (1)
  - Disease progression [Unknown]
